FAERS Safety Report 9235908 (Version 1)
Quarter: 2013Q2

REPORT INFORMATION
  Report Type: Spontaneous
  Country: US (occurrence: US)
  Receive Date: 20130417
  Receipt Date: 20130417
  Transmission Date: 20140414
  Serious: No
  Sender: FDA-Public Use
  Company Number: US-BAYER-2013-047413

PATIENT
  Age: 31 Year
  Sex: Female
  Weight: 70.3 kg

DRUGS (2)
  1. BETASERON [Suspect]
     Dosage: 0.25 MG, QOD
     Route: 058
  2. VITAMIN D [Concomitant]

REACTIONS (1)
  - Drug ineffective [Unknown]
